FAERS Safety Report 22665933 (Version 4)
Quarter: 2024Q1

REPORT INFORMATION
  Report Type: Spontaneous
  Country: US (occurrence: US)
  Receive Date: 20230703
  Receipt Date: 20240209
  Transmission Date: 20240410
  Serious: Yes (Other)
  Sender: FDA-Public Use
  Company Number: US-AMGEN-USASP2023112612

PATIENT
  Age: 78 Year
  Sex: Male
  Weight: 112.03 kg

DRUGS (3)
  1. XGEVA [Suspect]
     Active Substance: DENOSUMAB
     Indication: Bone disorder
     Dosage: UNK, QMO
     Route: 065
     Dates: start: 2018
  2. XGEVA [Suspect]
     Active Substance: DENOSUMAB
     Indication: Off label use
  3. XTANDI [Suspect]
     Active Substance: ENZALUTAMIDE
     Indication: Prostate cancer
     Dosage: UNK UNK, QD
     Route: 048
     Dates: start: 20190129

REACTIONS (6)
  - Osteomyelitis [Unknown]
  - Osteonecrosis of jaw [Unknown]
  - Weight decreased [Not Recovered/Not Resolved]
  - Prostatic specific antigen decreased [Unknown]
  - Off label use [Unknown]
  - Dysphagia [Unknown]

NARRATIVE: CASE EVENT DATE: 20220101
